FAERS Safety Report 24784397 (Version 1)
Quarter: 2024Q4

REPORT INFORMATION
  Report Type: Spontaneous
  Country: US (occurrence: None)
  Receive Date: 20241227
  Receipt Date: 20241227
  Transmission Date: 20250115
  Serious: Yes (Other)
  Sender: Public
  Company Number: None

PATIENT
  Sex: Female
  Weight: 81.65 kg

DRUGS (12)
  1. BRIMONIDINE TARTRATE/TIMOLOL MALEATE [Suspect]
     Active Substance: BRIMONIDINE TARTRATE\TIMOLOL MALEATE
     Indication: Glaucoma
     Dosage: 1 DROP EACH AYE 2X DAY  ??STOP TAKING 9/24 - 10/24? ?
     Route: 031
     Dates: start: 20240425
  2. MELOXICAM [Concomitant]
     Active Substance: MELOXICAM
  3. TRAMADOL [Concomitant]
     Active Substance: TRAMADOL
  4. ATORVASTATIN [Concomitant]
     Active Substance: ATORVASTATIN
  5. ACETAMINOPHEN [Concomitant]
     Active Substance: ACETAMINOPHEN
  6. Mult vitamin [Concomitant]
  7. Complex B-B12 [Concomitant]
  8. CALCIUM\VITAMIN D [Concomitant]
     Active Substance: CALCIUM\VITAMIN D
  9. ZINC [Concomitant]
     Active Substance: ZINC
  10. Vit C. [Concomitant]
  11. FLAX SEED [Concomitant]
     Active Substance: FLAX SEED
  12. LOSARTAN [Concomitant]
     Active Substance: LOSARTAN

REACTIONS (6)
  - Fatigue [None]
  - Dizziness [None]
  - Vertigo [None]
  - Heart rate decreased [None]
  - Blood pressure decreased [None]
  - Dysphonia [None]

NARRATIVE: CASE EVENT DATE: 20240422
